FAERS Safety Report 7278273-X (Version None)
Quarter: 2011Q1

REPORT INFORMATION
  Report Type: 
  Country: None (occurrence: None)
  Receive Date: 20110202
  Receipt Date: 20110202
  Transmission Date: 20110831
  Serious: No
  Sender: FDA-Public Use
  Company Number: None

PATIENT
  Age: 75 Year
  Sex: Male
  Weight: 89.3586 kg

DRUGS (2)
  1. CEFUROXIME AXETIL [Suspect]
     Indication: OROPHARYNGEAL PAIN
     Dosage: 1 TSP BID C FOOD AND H20 BID PO
     Route: 048
     Dates: start: 20110120, end: 20110123
  2. CEFUROXIME AXETIL [Suspect]
     Indication: UPPER RESPIRATORY TRACT INFECTION
     Dosage: 1 TSP BID C FOOD AND H20 BID PO
     Route: 048
     Dates: start: 20110120, end: 20110123

REACTIONS (2)
  - DYSPNOEA [None]
  - CHEST DISCOMFORT [None]
